FAERS Safety Report 10592262 (Version 1)
Quarter: 2014Q4

REPORT INFORMATION
  Report Type: Spontaneous
  Country: GB (occurrence: None)
  Receive Date: 20141117
  Receipt Date: 20141117
  Transmission Date: 20150529
  Serious: Yes (Death, Other)
  Sender: FDA-Public Use
  Company Number: GB2014GSK019624

PATIENT
  Age: 47 Year
  Sex: Male

DRUGS (4)
  1. MARAVIROC [Suspect]
     Active Substance: MARAVIROC
     Indication: HIV INFECTION
     Route: 048
     Dates: start: 20120626, end: 20141015
  2. KEPPRA [Concomitant]
     Active Substance: LEVETIRACETAM
  3. LAMIVUDINE (LAMIVUDINE) [Concomitant]
     Active Substance: LAMIVUDINE
  4. NEVIRAPINE (NEVIRAPINE) [Concomitant]
     Active Substance: NEVIRAPINE

REACTIONS (4)
  - General physical health deterioration [None]
  - Adenocarcinoma [None]
  - Hepatic function abnormal [None]
  - Metastasis [None]

NARRATIVE: CASE EVENT DATE: 20141006
